FAERS Safety Report 4289463-2 (Version None)
Quarter: 2004Q1

REPORT INFORMATION
  Report Type: 
  Country: None (occurrence: None)
  Receive Date: 20040206
  Receipt Date: 20040127
  Transmission Date: 20041129
  Serious: Yes (Hospitalization)
  Sender: FDA-Public Use
  Company Number: US-JNJFOC-20040105791

PATIENT
  Age: 69 Year
  Sex: Male
  Weight: 82.1011 kg

DRUGS (7)
  1. INFLIXIMAB (INFLIXIMAB, RECOMBINANT) LYOPHILIZED POWDER [Suspect]
     Indication: CROHN'S DISEASE
     Dosage: 5 MG/KG, INTRAVENOUS; SEE IMAGE
     Route: 042
     Dates: start: 20021108
  2. INFLIXIMAB (INFLIXIMAB, RECOMBINANT) LYOPHILIZED POWDER [Suspect]
     Indication: CROHN'S DISEASE
     Dosage: 5 MG/KG, INTRAVENOUS; SEE IMAGE
     Route: 042
     Dates: start: 20030103
  3. INFLIXIMAB (INFLIXIMAB, RECOMBINANT) LYOPHILIZED POWDER [Suspect]
     Indication: CROHN'S DISEASE
     Dosage: 5 MG/KG, INTRAVENOUS; SEE IMAGE
     Route: 042
     Dates: start: 20030228
  4. INFLIXIMAB (INFLIXIMAB, RECOMBINANT) LYOPHILIZED POWDER [Suspect]
     Indication: CROHN'S DISEASE
     Dosage: 5 MG/KG, INTRAVENOUS; SEE IMAGE
     Route: 042
     Dates: start: 20030425
  5. ACETAMINOPHEN [Concomitant]
  6. ANTIHISTAMINES (ANTIHISTAMINES) [Concomitant]
  7. STEROIDS (CORTICOSTEROID NOS) [Concomitant]

REACTIONS (1)
  - PROSTATE CANCER [None]
